FAERS Safety Report 8173020-1 (Version None)
Quarter: 2012Q1

REPORT INFORMATION
  Report Type: 
  Country: None (occurrence: None)
  Receive Date: 20120104
  Receipt Date: 20110916
  Transmission Date: 20120608
  Serious: No
  Sender: FDA-Public Use
  Company Number: 2011HGS-002549

PATIENT
  Age: 28 Year
  Sex: Female
  Weight: 41.2773 kg

DRUGS (9)
  1. BENLYSTA [Suspect]
     Indication: SYSTEMIC LUPUS ERYTHEMATOSUS
     Dosage: 10 MG/KG, 1 IN 2 WK, INTRAVENOUS DRIP
     Route: 041
     Dates: start: 20110729
  2. PROTONIX [Concomitant]
  3. MULTIVITAMIN (MULTIVITAMINS) (ERGOCALCIFEROL, ASCORBIC ACID, FOLIC ACI [Concomitant]
  4. FISH OIL (FISH OIL) [Concomitant]
  5. SYNTHROID (LEVOTHYROXINE SODIUM) (LEVOTHYROXINE SODIUM) [Concomitant]
  6. METHOTREXATE [Concomitant]
  7. DOXYCYCLINE [Concomitant]
  8. FOLIC ACID [Concomitant]
  9. B COMPLEX (BECOSYM FORTE) (PYRIDOXINE HYDROCHLORIDE, THIAMINE HYDROCHL [Concomitant]

REACTIONS (7)
  - DEPRESSED MOOD [None]
  - POOR QUALITY SLEEP [None]
  - MOOD ALTERED [None]
  - CRYING [None]
  - INFUSION SITE SWELLING [None]
  - INSOMNIA [None]
  - INFUSION SITE PAIN [None]
